FAERS Safety Report 7167057-9 (Version None)
Quarter: 2010Q4

REPORT INFORMATION
  Report Type: 
  Country: None (occurrence: None)
  Receive Date: 20101216
  Receipt Date: 20101202
  Transmission Date: 20110411
  Serious: Yes (Other)
  Sender: FDA-Public Use
  Company Number: D0069399A

PATIENT
  Sex: Male

DRUGS (6)
  1. REQUIP [Suspect]
     Indication: PARKINSON'S DISEASE
     Dosage: 10MG IN THE MORNING
     Route: 048
     Dates: start: 20080911
  2. REQUIP [Suspect]
     Route: 048
     Dates: start: 20031127, end: 20080911
  3. PK-MERZ [Suspect]
     Dosage: 150MG TWICE PER DAY
     Route: 065
  4. STALEVO 100 [Suspect]
     Route: 065
  5. AZILECT [Suspect]
     Dosage: 1MG PER DAY
     Route: 065
  6. MADOPAR DEPOT [Suspect]
     Dosage: 125MG PER DAY
     Route: 065

REACTIONS (3)
  - CEREBROVASCULAR ACCIDENT [None]
  - DYSKINESIA [None]
  - OEDEMA PERIPHERAL [None]
